FAERS Safety Report 8173659-3 (Version None)
Quarter: 2012Q1

REPORT INFORMATION
  Report Type: 
  Country: None (occurrence: None)
  Receive Date: 20120223
  Receipt Date: 20120210
  Transmission Date: 20120608
  Serious: Yes (Death, Hospitalization)
  Sender: FDA-Public Use
  Company Number: 2012PL000033

PATIENT
  Sex: Male

DRUGS (2)
  1. ALLOPURINOL [Suspect]
     Indication: GOUT
  2. ALLOPURINOL [Suspect]
     Indication: HYPERURICAEMIA

REACTIONS (6)
  - HYPERURICAEMIA [None]
  - DERMATITIS EXFOLIATIVE [None]
  - SEPTIC SHOCK [None]
  - GOUT [None]
  - LUNG INFECTION [None]
  - MULTI-ORGAN FAILURE [None]
